FAERS Safety Report 5800698-7 (Version None)
Quarter: 2008Q3

REPORT INFORMATION
  Report Type: 
  Country: None (occurrence: None)
  Receive Date: 20080703
  Receipt Date: 20080620
  Transmission Date: 20090109
  Serious: Yes (Hospitalization)
  Sender: FDA-Public Use
  Company Number: CH-GENENTECH-223152

PATIENT
  Sex: Male

DRUGS (2)
  1. RAPTIVA [Suspect]
     Indication: PSORIASIS
     Dosage: 0.8 ML, 1/WEEK
     Route: 058
     Dates: start: 20030514, end: 20031021
  2. RAPTIVA [Suspect]
     Dates: start: 20041115, end: 20050823

REACTIONS (6)
  - CYTOLYTIC HEPATITIS [None]
  - INFLAMMATION [None]
  - PANCYTOPENIA [None]
  - PLASMABLASTIC LYMPHOMA [None]
  - PYREXIA [None]
  - THROMBOCYTOPENIA [None]
